FAERS Safety Report 8339906-X (Version None)
Quarter: 2012Q2

REPORT INFORMATION
  Report Type: 
  Country: None (occurrence: None)
  Receive Date: 20120507
  Receipt Date: 20081124
  Transmission Date: 20120825
  Serious: No
  Sender: FDA-Public Use
  Company Number: US-TEVA-2008000833

PATIENT
  Sex: Female

DRUGS (2)
  1. TREANDA [Suspect]
     Route: 042
     Dates: start: 20081120, end: 20081120
  2. TREANDA [Suspect]
     Indication: CHRONIC LYMPHOCYTIC LEUKAEMIA
     Route: 042
     Dates: start: 20081001, end: 20080101

REACTIONS (1)
  - RASH [None]
